FAERS Safety Report 8962395 (Version 1)
Quarter: 2012Q4

REPORT INFORMATION
  Report Type: Spontaneous
  Country: GB (occurrence: None)
  Receive Date: 20120914
  Receipt Date: 20120914
  Transmission Date: 20130627
  Serious: Yes (Death, Hospitalization, Other)
  Sender: FDA-Public Use
  Company Number: 2012MA010974

PATIENT
  Sex: Female

DRUGS (2)
  1. FEVERALL [Suspect]
     Route: 064
  2. ANADIN EXTRA [Suspect]
     Route: 064

REACTIONS (13)
  - Maternal drugs affecting foetus [None]
  - Overdose [None]
  - Apgar score low [None]
  - Neonatal respiratory distress syndrome [None]
  - Jaundice neonatal [None]
  - Aspartate aminotransferase increased [None]
  - Prothrombin time prolonged [None]
  - Haemoglobin decreased [None]
  - White blood cell count decreased [None]
  - Vomiting neonatal [None]
  - Neonatal tachypnoea [None]
  - Respiratory tract infection [None]
  - Petechiae [None]
